FAERS Safety Report 10983984 (Version 2)
Quarter: 2015Q2

REPORT INFORMATION
  Report Type: Spontaneous
  Country: US (occurrence: None)
  Receive Date: 20150401
  Receipt Date: 20150408
  Transmission Date: 20150821
  Serious: Yes (Disabling, Other)
  Sender: FDA-Public Use
  Company Number: RAP-0069-2015

PATIENT
  Age: 25 Year
  Sex: Male

DRUGS (1)
  1. PROCYSBI DELAYED-RELEASE [Suspect]
     Active Substance: CYSTEAMINE BITARTRATE
     Indication: CYSTINOSIS
     Dosage: (375 MG, 2 IN 1 D)
     Route: 048
     Dates: start: 201406

REACTIONS (10)
  - Blindness unilateral [None]
  - Somnolence [None]
  - Eye pain [None]
  - Abdominal pain upper [None]
  - Eye disorder [None]
  - Neuralgia [None]
  - Dry mouth [None]
  - Inappropriate schedule of drug administration [None]
  - Intraocular pressure increased [None]
  - Hypoaesthesia [None]

NARRATIVE: CASE EVENT DATE: 201406
